FAERS Safety Report 4953824-6 (Version None)
Quarter: 2006Q1

REPORT INFORMATION
  Report Type: 
  Country: None (occurrence: None)
  Receive Date: 20060324
  Receipt Date: 20060324
  Transmission Date: 20060701
  Serious: Yes (Other)
  Sender: FDA-Public Use
  Company Number: None

PATIENT
  Age: 49 Year
  Sex: Female
  Weight: 92.9874 kg

DRUGS (1)
  1. CYMBALTA [Suspect]
     Indication: DEPRESSION
     Dosage: 1 CAPSULE    DAILY   PO
     Route: 048
     Dates: start: 20060212, end: 20060316

REACTIONS (3)
  - INSOMNIA [None]
  - MANIA [None]
  - TREMOR [None]
